FAERS Safety Report 9192286 (Version 2)
Quarter: 2013Q2

REPORT INFORMATION
  Report Type: Spontaneous
  Country: FR (occurrence: FR)
  Receive Date: 20130327
  Receipt Date: 20130604
  Transmission Date: 20140414
  Serious: Yes (Death, Hospitalization, Other)
  Sender: FDA-Public Use
  Company Number: FR-009507513-1303FRA009402

PATIENT
  Age: 65 Year
  Sex: Female

DRUGS (13)
  1. CANCIDAS [Suspect]
     Dosage: UNK
  2. CEFEPIME [Suspect]
     Route: 042
  3. CEFTAZIDIME [Suspect]
     Route: 042
  4. CYMEVAN CAPSULES [Suspect]
     Dosage: UNK
     Route: 048
  5. FLAGYL [Suspect]
     Dosage: UNK
  6. EUPANTOL [Suspect]
     Dosage: UNK
  7. AMIKACIN [Concomitant]
  8. LINEZOLID [Concomitant]
  9. NOREPINEPHRINE [Concomitant]
  10. METHYLPREDNISOLONE [Concomitant]
  11. ALFENTANIL HYDROCHLORIDE [Concomitant]
  12. PIPERACILLIN SODIUM [Concomitant]
  13. ACYCLOVIR [Concomitant]

REACTIONS (1)
  - Toxic epidermal necrolysis [Fatal]
